FAERS Safety Report 11117571 (Version 2)
Quarter: 2015Q2

REPORT INFORMATION
  Report Type: Spontaneous
  Country: CH (occurrence: CH)
  Receive Date: 20150517
  Receipt Date: 20150529
  Transmission Date: 20150821
  Serious: Yes (Hospitalization)
  Sender: FDA-Public Use
  Company Number: CH-TEVA-562680ISR

PATIENT
  Age: 83 Year
  Sex: Female

DRUGS (8)
  1. ASPIRIN CARDIO 100 MG [Concomitant]
     Active Substance: ASPIRIN
     Dosage: 100 MILLIGRAM DAILY; 1-0-0-0
     Route: 065
  2. ATORVASTATIN 40 MG [Suspect]
     Active Substance: ATORVASTATIN
     Dosage: 40 MILLIGRAM DAILY; 1-0-0-0
     Route: 065
  3. SANALEPSI [Suspect]
     Active Substance: DOXYLAMINE
     Dosage: RESERVE MEDICATION
     Route: 065
  4. FRAGMIN 2500 IU S.C. [Concomitant]
     Dosage: 2500 IU (INTERNATIONAL UNIT) DAILY; 0-0-1-0
     Route: 058
  5. HALDOL [Suspect]
     Active Substance: HALOPERIDOL
     Dosage: RESERVE MEDICATION
     Route: 065
  6. DIPIPERON 40 MG [Suspect]
     Active Substance: PIPAMPERONE
     Dosage: 20 MILLIGRAM DAILY; 0-0-0-0.5, CONTINUED
     Route: 065
  7. CIPROXIN 500 MG [Suspect]
     Active Substance: CIPROFLOXACIN
     Indication: URINARY TRACT INFECTION
     Dosage: 1000 MILLIGRAM DAILY; 1-0-1-0
     Route: 065
  8. PRIMPERAN [Suspect]
     Active Substance: METOCLOPRAMIDE HYDROCHLORIDE
     Dosage: RESERVE MEDICATION
     Route: 065

REACTIONS (2)
  - Epilepsy [Unknown]
  - Confusional state [Not Recovered/Not Resolved]
